FAERS Safety Report 8102002-0 (Version None)
Quarter: 2012Q1

REPORT INFORMATION
  Report Type: 
  Country: None (occurrence: None)
  Receive Date: 20120131
  Receipt Date: 20120124
  Transmission Date: 20120608
  Serious: Yes (Life-Threatening, Hospitalization)
  Sender: FDA-Public Use
  Company Number: FR-ABBOTT-12P-056-0896809-00

PATIENT
  Sex: Male

DRUGS (3)
  1. CLARITHROMYCIN [Suspect]
     Indication: TONSILLITIS
     Dosage: 1000MG DAILY, 500MG (2 IN 1 DAY)
     Route: 048
     Dates: start: 20111205, end: 20111205
  2. ACETAMINOPHEN [Concomitant]
     Indication: TONSILLITIS
     Route: 048
     Dates: start: 20111204
  3. HEXASPRAY [Suspect]
     Indication: TONSILLITIS
     Dosage: DAILY
     Dates: start: 20111205, end: 20111206

REACTIONS (1)
  - ANGIOEDEMA [None]
